FAERS Safety Report 6962750-2 (Version None)
Quarter: 2010Q3

REPORT INFORMATION
  Report Type: 
  Country: None (occurrence: None)
  Receive Date: 20100902
  Receipt Date: 20100830
  Transmission Date: 20110219
  Serious: Yes (Hospitalization)
  Sender: FDA-Public Use
  Company Number: SE-BRISTOL-MYERS SQUIBB COMPANY-15261670

PATIENT
  Age: 30 Year
  Sex: Male

DRUGS (1)
  1. BUSPAR [Suspect]
     Dosage: POSSIBLY INTRA-ARTERIALLY
     Route: 042

REACTIONS (4)
  - INCORRECT ROUTE OF DRUG ADMINISTRATION [None]
  - MEDICATION ERROR [None]
  - PAIN [None]
  - PERIPHERAL COLDNESS [None]
